FAERS Safety Report 12721027 (Version 1)
Quarter: 2016Q3

REPORT INFORMATION
  Report Type: Other
  Country: US (occurrence: US)
  Receive Date: 20160907
  Receipt Date: 20160907
  Transmission Date: 20161109
  Serious: No
  Sender: FDA-Public Use
  Company Number: US-COL_21100_2015

PATIENT
  Sex: Female

DRUGS (5)
  1. ALLERGY SHOTS [Concomitant]
     Active Substance: UNSPECIFIED INGREDIENT
     Dosage: PRN
  2. ULTRA PALMOLIVE [Suspect]
     Active Substance: TRICLOSAN
     Indication: PRODUCT USED FOR UNKNOWN INDICATION
     Dosage: ADDED TO WATER/ 2-3 TIMES A DAY
     Route: 061
     Dates: start: 2015, end: 20151029
  3. COLGATE TOTAL ADVANCED WHITENING [Suspect]
     Active Substance: SODIUM FLUORIDE\TRICLOSAN
     Indication: DENTAL DISORDER PROPHYLAXIS
     Dosage: COVERS ABOUT HALF THE HEAD OF HER TOOTHBRUSH/ AT LEAST TWICE A DAY/
     Route: 048
     Dates: start: 201508
  4. MERCAPTOPURINE. [Suspect]
     Active Substance: MERCAPTOPURINE
     Indication: PRODUCT USED FOR UNKNOWN INDICATION
     Dosage: 50 MG/ NI/
  5. LISINOPRIL. [Concomitant]
     Active Substance: LISINOPRIL
     Dosage: NI/ ONCE A DAY/

REACTIONS (3)
  - Pruritus generalised [Not Recovered/Not Resolved]
  - Rash generalised [Not Recovered/Not Resolved]
  - Sleep disorder [Not Recovered/Not Resolved]

NARRATIVE: CASE EVENT DATE: 2015
